FAERS Safety Report 9925240 (Version 1)
Quarter: 2014Q1

REPORT INFORMATION
  Report Type: Spontaneous
  Country: US (occurrence: US)
  Receive Date: 20140226
  Receipt Date: 20140226
  Transmission Date: 20141002
  Serious: Yes (Hospitalization)
  Sender: FDA-Public Use
  Company Number: US-BRACCO-009417

PATIENT
  Age: 78 Year
  Sex: Female
  Weight: 82 kg

DRUGS (31)
  1. LEVOTHYROXINE SODIUM [Concomitant]
  2. CLOPIDOGREL [Concomitant]
     Dates: start: 20120507, end: 20120507
  3. INSULIN GLARGINE [Concomitant]
     Dates: start: 20120507, end: 20120507
  4. INSULIN GLARGINE [Concomitant]
     Dates: start: 20120508, end: 20120509
  5. VITAMIN B6 [Concomitant]
  6. CALCIUM [Concomitant]
  7. ISOVUE 370 [Suspect]
     Indication: CATHETERISATION CARDIAC
     Route: 042
     Dates: start: 20120507, end: 20120507
  8. ASPIRIN [Concomitant]
     Dates: start: 20120508
  9. ALL OTHER THERAPEUTIC PRODUCTS [Suspect]
     Indication: PERCUTANEOUS CORONARY INTERVENTION
     Dosage: 49.2 ML/HOUR BEGINNING AT 10:41
     Route: 041
     Dates: start: 20120507, end: 20120507
  10. CLOPIDOGREL [Concomitant]
     Dates: start: 20120508
  11. MIDAZOLAM [Concomitant]
     Dates: start: 20120507, end: 20120507
  12. ALL OTHER THERAPEUTIC PRODUCTS [Suspect]
     Indication: PERCUTANEOUS CORONARY INTERVENTION
     Dosage: AT 10:40
     Route: 040
     Dates: start: 20120507, end: 20120507
  13. ALL OTHER THERAPEUTIC PRODUCTS [Suspect]
     Indication: PERCUTANEOUS CORONARY INTERVENTION
     Dosage: LOADING DOSE OF 4 CAPSULES AT 11:15
     Route: 048
     Dates: start: 20120507, end: 20120507
  14. ALL OTHER THERAPEUTIC PRODUCTS [Suspect]
     Indication: PERCUTANEOUS CORONARY INTERVENTION
     Dosage: 4 CAPSULES POST INFUSION AT 12:52
     Route: 048
     Dates: start: 20120507, end: 20120507
  15. ROSUVASTATIN [Concomitant]
     Dates: start: 20120504
  16. ASPIRIN [Concomitant]
     Dates: start: 20120507, end: 20120507
  17. IRBESARTAN [Concomitant]
     Dates: start: 20120508
  18. ONDANSETRON HCL [Concomitant]
     Dates: start: 20120507
  19. ASPIRIN [Concomitant]
  20. NALOXONE HCL [Concomitant]
     Dates: start: 20120507, end: 20120507
  21. FERROUS SULFATE [Concomitant]
     Dates: start: 20120508
  22. CARVEDILOL [Concomitant]
     Dates: start: 20120507
  23. INSULIN LISPRO [Concomitant]
     Dates: start: 20120507, end: 20120508
  24. INSULIN LISPRO [Concomitant]
     Dates: start: 20120509, end: 20120510
  25. FUROSEMIDE [Concomitant]
     Dates: start: 20120507, end: 20120507
  26. HYDROMORPHONE [Concomitant]
     Dates: start: 20120507, end: 20120507
  27. AMMONIUM CHLORIDE W/DIPHENHYDRAMINE [Concomitant]
     Dates: start: 20120507, end: 20120507
  28. BIVALIRUDIN [Concomitant]
     Dates: start: 20120507, end: 20120507
  29. NITROGLYCERIN [Concomitant]
     Dates: start: 20120507, end: 20120507
  30. BIVALIRUDIN [Concomitant]
     Dates: start: 20120507, end: 20120507
  31. NIFEDIPINE [Concomitant]
     Dates: start: 20120507, end: 20120507

REACTIONS (1)
  - Renal failure acute [Recovered/Resolved]
